FAERS Safety Report 4409883-2 (Version None)
Quarter: 2004Q3

REPORT INFORMATION
  Report Type: 
  Country: None (occurrence: None)
  Receive Date: 20040726
  Receipt Date: 20040712
  Transmission Date: 20050211
  Serious: Yes (Other)
  Sender: FDA-Public Use
  Company Number: ES-JNJFOC-20040704170

PATIENT
  Sex: 0

DRUGS (3)
  1. INFLIXIMAB (INFLIXIMAB, RECOMBINANT) LYOPHILIZED POWDER [Suspect]
     Indication: CROHN'S DISEASE
     Dosage: INTRAVENOUS
     Route: 042
  2. CORTICOSTEROIDS (CORTICOSTEROIDS) [Concomitant]
  3. AZATHIOPRINE [Concomitant]

REACTIONS (1)
  - SYSTEMIC CANDIDA [None]
